FAERS Safety Report 19930169 (Version 1)
Quarter: 2021Q4

REPORT INFORMATION
  Report Type: Spontaneous
  Country: CN (occurrence: CN)
  Receive Date: 20211007
  Receipt Date: 20211007
  Transmission Date: 20220304
  Serious: Yes (Hospitalization)
  Sender: FDA-Public Use
  Company Number: CN-BAXTER-2021BAX024407

PATIENT
  Age: 47 Year
  Sex: Female
  Weight: 60 kg

DRUGS (8)
  1. CYCLOPHOSPHAMIDE [Suspect]
     Active Substance: CYCLOPHOSPHAMIDE
     Indication: Breast cancer female
     Dosage: CYCLOPHOSPHAMIDE 0.9 G + 0.9% SODIUM CHLORIDE 50 ML
     Route: 041
     Dates: start: 20210529, end: 20210529
  2. CYCLOPHOSPHAMIDE [Suspect]
     Active Substance: CYCLOPHOSPHAMIDE
     Dosage: DOSE RE-INTRODUCED; CYCLOPHOSPHAMIDE + 0.9% SODIUM CHLORIDE
     Route: 041
  3. SODIUM CHLORIDE [Suspect]
     Active Substance: SODIUM CHLORIDE
     Indication: Medication dilution
     Dosage: CYCLOPHOSPHAMIDE 900.00 MG + 0.9% SODIUM CHLORIDE INJECTION 50ML
     Route: 041
     Dates: start: 20210529, end: 20210529
  4. SODIUM CHLORIDE [Suspect]
     Active Substance: SODIUM CHLORIDE
     Dosage: DOCETAXEL INJECTION 110MG + 0.9% SODIUM CHLORIDE INJECTION 250ML
     Route: 041
     Dates: start: 20210529, end: 20210529
  5. SODIUM CHLORIDE [Suspect]
     Active Substance: SODIUM CHLORIDE
     Dosage: DOSE RE-INTRODUCED; DOCETAXEL INJECTION + 0.9% SODIUM CHLORIDE
     Route: 041
  6. SODIUM CHLORIDE [Suspect]
     Active Substance: SODIUM CHLORIDE
     Dosage: DOSE RE-INTRODUCED; CYCLOPHOSPHAMIDE + 0.9% SODIUM CHLORIDE
     Route: 041
  7. DOCETAXEL [Suspect]
     Active Substance: DOCETAXEL
     Indication: Breast cancer female
     Dosage: DOCETAXEL 110 MG + 0.9% SODIUM CHLORIDE 250 ML
     Route: 041
     Dates: start: 20210529, end: 20210529
  8. DOCETAXEL [Suspect]
     Active Substance: DOCETAXEL
     Dosage: DOSE RE-INTRODUCED; DOCETAXEL + 0.9% SODIUM CHLORIDE
     Route: 041

REACTIONS (2)
  - Hepatic function abnormal [Recovering/Resolving]
  - Asthenia [Recovering/Resolving]

NARRATIVE: CASE EVENT DATE: 20210603
